FAERS Safety Report 8744319 (Version 3)
Quarter: 2013Q3

REPORT INFORMATION
  Report Type: Spontaneous
  Country: GB (occurrence: GB)
  Receive Date: 20120825
  Receipt Date: 20130930
  Transmission Date: 20140515
  Serious: Yes (Other)
  Sender: FDA-Public Use
  Company Number: GB-009507513-1208GBR006692

PATIENT
  Age: 80 Year
  Sex: Male

DRUGS (5)
  1. BRIDION [Suspect]
     Indication: NEUROMUSCULAR BLOCKADE REVERSAL
     Dosage: 200 MG, UNK
     Route: 042
  2. LABETALOL HYDROCHLORIDE [Concomitant]
  3. LERCANIDIPINE [Concomitant]
  4. PERINDOPRIL [Concomitant]
  5. ROCURONIUM BROMIDE [Concomitant]
     Indication: NEUROMUSCULAR BLOCKADE REVERSAL

REACTIONS (1)
  - Bradycardia [Recovered/Resolved]
